FAERS Safety Report 7376075-7 (Version None)
Quarter: 2011Q1

REPORT INFORMATION
  Report Type: 
  Country: None (occurrence: None)
  Receive Date: 20110325
  Receipt Date: 20110322
  Transmission Date: 20110831
  Serious: Yes (Other)
  Sender: FDA-Public Use
  Company Number: US-BRISTOL-MYERS SQUIBB COMPANY-15587454

PATIENT
  Age: 39 Year
  Sex: Female

DRUGS (4)
  1. ATAZANAVIR [Suspect]
     Indication: ANTIRETROVIRAL THERAPY
     Dates: start: 20100527
  2. DAPSONE [Suspect]
  3. RITONAVIR [Suspect]
     Indication: ANTIRETROVIRAL THERAPY
  4. TRUVADA [Suspect]
     Indication: ANTIRETROVIRAL THERAPY
     Dates: start: 20100527

REACTIONS (2)
  - HYPERBILIRUBINAEMIA [None]
  - HAEMOLYTIC ANAEMIA [None]
